FAERS Safety Report 9142727 (Version 1)
Quarter: 2013Q1

REPORT INFORMATION
  Report Type: Spontaneous
  Country: US (occurrence: US)
  Receive Date: 20130306
  Receipt Date: 20130306
  Transmission Date: 20140127
  Serious: Yes (Hospitalization)
  Sender: FDA-Public Use
  Company Number: US-BRISTOL-MYERS SQUIBB COMPANY-17414152

PATIENT
  Age: 52 Year
  Sex: Male
  Weight: 81.63 kg

DRUGS (3)
  1. ABILIFY [Suspect]
     Indication: DEPRESSION
     Dosage: 02FEB13: DECREASED TO 5MG,LAST DOSE: 21JAN2013
     Dates: start: 2012
  2. PRISTIQ [Suspect]
     Indication: DEPRESSION
     Dosage: INCREASED TO 100MG
  3. NORVASC [Concomitant]
     Indication: HYPERTENSION

REACTIONS (8)
  - Anxiety [Not Recovered/Not Resolved]
  - Insomnia [Unknown]
  - Paranoia [Not Recovered/Not Resolved]
  - Agitation [Unknown]
  - Dyskinesia [Not Recovered/Not Resolved]
  - Thinking abnormal [Unknown]
  - Weight decreased [Unknown]
  - Weight increased [Unknown]
